FAERS Safety Report 9649029 (Version 1)
Quarter: 2013Q4

REPORT INFORMATION
  Report Type: Report from Study
  Country: US (occurrence: US)
  Receive Date: 20131028
  Receipt Date: 20131028
  Transmission Date: 20140711
  Serious: Yes (Hospitalization)
  Sender: FDA-Public Use
  Company Number: US-ABBVIE-13P-163-1159498-00

PATIENT
  Sex: Male
  Weight: 90.8 kg

DRUGS (10)
  1. LUPRON DEPOT [Suspect]
     Indication: PROSTATE CANCER
     Dates: start: 201205
  2. CARVEDILOL [Concomitant]
     Indication: HYPERTENSION
  3. SPIRONOLACTONE [Concomitant]
     Indication: CARDIAC DISORDER
  4. BUMETANIDE [Concomitant]
     Indication: DIURETIC THERAPY
  5. PANTOPRAZOLE [Concomitant]
     Indication: GASTRIC DISORDER
  6. ALPRAZOLAM [Concomitant]
     Indication: ANXIETY
  7. ECOTRIN [Concomitant]
     Indication: CEREBROVASCULAR ACCIDENT
  8. COUMADIN [Concomitant]
     Indication: CEREBROVASCULAR ACCIDENT
  9. LOSARTIN [Concomitant]
     Indication: HYPERTENSION
  10. TAMSULOSIN [Concomitant]
     Indication: PROSTATIC DISORDER

REACTIONS (5)
  - Pulmonary fibrosis [Not Recovered/Not Resolved]
  - Cough [Recovered/Resolved]
  - Dyspnoea [Recovered/Resolved]
  - Pneumonia [Recovered/Resolved]
  - Dyspnoea [Not Recovered/Not Resolved]
